FAERS Safety Report 4734009-5 (Version None)
Quarter: 2005Q3

REPORT INFORMATION
  Report Type: 
  Country: None (occurrence: None)
  Receive Date: 20050721
  Receipt Date: 20050509
  Transmission Date: 20060218
  Serious: No
  Sender: FDA-Public Use
  Company Number: 2005SP000651

PATIENT
  Age: 89 Year
  Sex: Male

DRUGS (3)
  1. LUNESTA [Suspect]
     Dosage: 1 MG;HS
  2. ZOLOFT [Concomitant]
  3. TEMAZEPAM [Concomitant]

REACTIONS (2)
  - DRUG INEFFECTIVE [None]
  - INSOMNIA [None]
